FAERS Safety Report 5133322-X (Version None)
Quarter: 2006Q4

REPORT INFORMATION
  Report Type: 
  Country: None (occurrence: None)
  Receive Date: 20060831
  Receipt Date: 20060619
  Transmission Date: 20070319
  Serious: No
  Sender: FDA-Public Use
  Company Number: 2006-BP-07007BP

PATIENT
  Age: 83 Year
  Sex: Female

DRUGS (2)
  1. SPIRIVA [Suspect]
     Dosage: (18 MCG),IH
     Dates: start: 20051001
  2. SPIRIVA [Suspect]

REACTIONS (1)
  - DYSPNOEA [None]
